FAERS Safety Report 11334604 (Version 9)
Quarter: 2015Q4

REPORT INFORMATION
  Report Type: Report from Study
  Country: US (occurrence: US)
  Receive Date: 20150804
  Receipt Date: 20151216
  Transmission Date: 20160304
  Serious: Yes (Hospitalization, Other)
  Sender: FDA-Public Use
  Company Number: US-ALEXION-A201502882

PATIENT
  Age: 9 Month
  Sex: Female

DRUGS (2)
  1. SOLIRIS [Suspect]
     Active Substance: ECULIZUMAB
     Dosage: 300 MG, UNK
     Route: 042
  2. SOLIRIS [Suspect]
     Active Substance: ECULIZUMAB
     Indication: HAEMOLYTIC URAEMIC SYNDROME
     Dosage: 300 MG, UNK
     Route: 042

REACTIONS (11)
  - Clostridium difficile infection [Unknown]
  - Blood pressure abnormal [Unknown]
  - Oxygen saturation decreased [Unknown]
  - Renal vascular thrombosis [Unknown]
  - Tremor [Unknown]
  - Pyrexia [Unknown]
  - Infection [Unknown]
  - Thrombotic microangiopathy [Not Recovered/Not Resolved]
  - Blood pressure increased [Unknown]
  - Gene mutation identification test positive [Unknown]
  - Urine output decreased [Unknown]

NARRATIVE: CASE EVENT DATE: 201511
